FAERS Safety Report 25210405 (Version 1)
Quarter: 2025Q2

REPORT INFORMATION
  Report Type: Spontaneous
  Country: ES (occurrence: ES)
  Receive Date: 20250417
  Receipt Date: 20250417
  Transmission Date: 20250717
  Serious: Yes (Life-Threatening, Hospitalization, Other)
  Sender: NOVA LABORATORIES
  Company Number: ES-Nova Laboratories Limited-2175104

PATIENT
  Age: 65 Year
  Sex: Female

DRUGS (17)
  1. PURIXAN [Suspect]
     Active Substance: MERCAPTOPURINE
     Indication: Acute lymphocytic leukaemia
  2. RITUXIMAB [Suspect]
     Active Substance: RITUXIMAB
  3. PIPERACILLIN SODIUM\TAZOBACTAM SODIUM [Concomitant]
     Active Substance: PIPERACILLIN SODIUM\TAZOBACTAM SODIUM
  4. THIOTEPA [Suspect]
     Active Substance: THIOTEPA
  5. METHOTREXATE [Suspect]
     Active Substance: METHOTREXATE
  6. DEXAMETHASONE [Suspect]
     Active Substance: DEXAMETHASONE
  7. VINCRISTINE SULFATE [Suspect]
     Active Substance: VINCRISTINE SULFATE
  8. CYCLOPHOSPHAMIDE [Suspect]
     Active Substance: CYCLOPHOSPHAMIDE
  9. INOTUZUMAB OZOGAMICIN [Suspect]
     Active Substance: INOTUZUMAB OZOGAMICIN
  10. MITOXANTRONE [Suspect]
     Active Substance: MITOXANTRONE HYDROCHLORIDE
  11. CYTARABINE [Suspect]
     Active Substance: CYTARABINE
  12. ISAVUCONAZOLE [Concomitant]
     Active Substance: ISAVUCONAZOLE
  13. LEVOFLOXACIN [Concomitant]
     Active Substance: LEVOFLOXACIN
  14. AZTREONAM [Concomitant]
     Active Substance: AZTREONAM
  15. AVIBACTAM SODIUM\CEFTAZIDIME [Concomitant]
     Active Substance: AVIBACTAM SODIUM\CEFTAZIDIME
  16. TEICOPLANIN [Concomitant]
     Active Substance: TEICOPLANIN
  17. PIPERACILLIN SODIUM\TAZOBACTAM SODIUM [Concomitant]
     Active Substance: PIPERACILLIN SODIUM\TAZOBACTAM SODIUM

REACTIONS (6)
  - Septic shock [Recovering/Resolving]
  - Device related infection [Recovering/Resolving]
  - Pseudomonas infection [Recovering/Resolving]
  - Enterococcal infection [Recovering/Resolving]
  - Stenotrophomonas infection [Recovering/Resolving]
  - Pneumonia [Recovering/Resolving]
